FAERS Safety Report 10038674 (Version 1)
Quarter: 2014Q1

REPORT INFORMATION
  Report Type: Spontaneous
  Country: US (occurrence: None)
  Receive Date: 20140306
  Receipt Date: 20140306
  Transmission Date: 20141002
  Serious: Yes (Hospitalization)
  Sender: FDA-Public Use
  Company Number: 163-21880-12063681

PATIENT
  Age: 59 Year
  Sex: Female
  Weight: 72.6 kg

DRUGS (25)
  1. FLUTICASONE (FLUTICASONE) [Concomitant]
  2. ENOXAPARIN (ENOXAPARIN) [Concomitant]
  3. MULTIVITAMIN (MULTIVITAMINS) [Concomitant]
  4. FILGRASTIM (FILGRASTIM) [Concomitant]
  5. AMOXICILLIN (AMOXICILLIN) [Concomitant]
  6. DOXYCYCLINE (DOXYCYCLINE) [Concomitant]
  7. BACTRIM DS (BACTRIM) [Concomitant]
  8. AUGMENTIN [Concomitant]
  9. PREDNISONE (PREDNISONE) [Concomitant]
  10. DIPHENHYDRAMINE (DIPHENHYDRAMINE) [Concomitant]
  11. NYSTATIN (NYSTATIN) (OINTMENT) [Concomitant]
  12. HYDROCORTISONE (HYDROCORTISONE) (OINTMENT) [Concomitant]
  13. ACYCLOVIR (ACICLOVIR) [Concomitant]
  14. VALACYCLOVIR (VALACICLOVIR HYDROCHLORIDE) [Concomitant]
  15. FAMICICLOVIR (FAMCICLOVIR) [Concomitant]
  16. ERYTHROMYCIN (ERYTHROMYCIN) [Concomitant]
  17. REVLIMID (LENALIDOMIDE) (CAPSULES) [Suspect]
     Indication: PLASMA CELL MYELOMA
     Dosage: 25 MG, 21 IN 21 D, PO
     Route: 048
     Dates: start: 20120604
  18. DEXAMETHASONE (DEXAMETHASONE) (UNKNOWN) [Suspect]
     Indication: PLASMA CELL MYELOMA
     Dosage: 1 IN 1 WK, PO
     Route: 048
     Dates: start: 20120603
  19. ELOTUZUMAB (ELOTUZUMAB) (UNKNOWN) [Suspect]
     Indication: PLASMA CELL MYELOMA
  20. GABAPENTIN (GABAPENTIN) [Concomitant]
  21. ASA (ACETYLSALICYLIC ACID) [Concomitant]
  22. ZOLEDRONIC ACID (ZOLEDRONIC ACID) [Concomitant]
  23. BABY ASPIRIN (ACETYLSALICYLIC ACID) [Concomitant]
  24. VICODIN (VICODIN) [Concomitant]
  25. OMEPRAZOLE (OMEPRAZOLE) [Concomitant]

REACTIONS (2)
  - Chronic obstructive pulmonary disease [None]
  - Bronchitis [None]
